FAERS Safety Report 25939485 (Version 4)
Quarter: 2025Q4

REPORT INFORMATION
  Report Type: Report from Study
  Country: CA (occurrence: CA)
  Receive Date: 20251020
  Receipt Date: 20251211
  Transmission Date: 20260117
  Serious: Yes (Other)
  Sender: CELLTRION
  Company Number: CA-CELLTRION INC.-2025CA028841

PATIENT

DRUGS (3)
  1. USTEKINUMAB [Suspect]
     Active Substance: USTEKINUMAB
     Indication: Crohn^s disease
     Dosage: 90MG S/C Q4 WEEKS
     Route: 058
     Dates: start: 202505
  2. USTEKINUMAB [Suspect]
     Active Substance: USTEKINUMAB
     Dosage: 90MG S/C Q4 WEEKS
     Route: 058
     Dates: start: 20251004
  3. USTEKINUMAB [Suspect]
     Active Substance: USTEKINUMAB
     Dosage: 90 MG S/C EVERY 4 WEEKS
     Route: 058
     Dates: start: 20251203

REACTIONS (11)
  - Haematochezia [Unknown]
  - Abdominal pain [Unknown]
  - Anal incontinence [Unknown]
  - Defaecation urgency [Unknown]
  - Frequent bowel movements [Unknown]
  - Cold sweat [Unknown]
  - Chest pain [Unknown]
  - Loss of consciousness [Unknown]
  - Condition aggravated [Unknown]
  - Therapy non-responder [Unknown]
  - Intentional product use issue [Unknown]

NARRATIVE: CASE EVENT DATE: 20251007
